FAERS Safety Report 13345020 (Version 1)
Quarter: 2017Q1

REPORT INFORMATION
  Report Type: Spontaneous
  Country: US (occurrence: US)
  Receive Date: 20170316
  Receipt Date: 20170316
  Transmission Date: 20170428
  Serious: No
  Sender: FDA-Public Use
  Company Number: None

PATIENT
  Age: 4 Year
  Sex: Male
  Weight: 18.9 kg

DRUGS (1)
  1. AZELASTINE [Suspect]
     Active Substance: AZELASTINE
     Indication: RHINITIS ALLERGIC
     Route: 045
     Dates: start: 20170303, end: 20170303

REACTIONS (6)
  - Face oedema [None]
  - Dyspnoea [None]
  - Rash erythematous [None]
  - Tongue oedema [None]
  - Rash maculo-papular [None]
  - Lip oedema [None]

NARRATIVE: CASE EVENT DATE: 20170304
